FAERS Safety Report 12635884 (Version 6)
Quarter: 2017Q3

REPORT INFORMATION
  Report Type: Spontaneous
  Country: US (occurrence: US)
  Receive Date: 20160809
  Receipt Date: 20170728
  Transmission Date: 20171127
  Serious: Yes (Other)
  Sender: FDA-Public Use
  Company Number: US-PFIZER INC-2016372900

PATIENT
  Age: 58 Year
  Sex: Female

DRUGS (4)
  1. XELJANZ XR [Suspect]
     Active Substance: TOFACITINIB CITRATE
     Indication: RHEUMATOID ARTHRITIS
     Dosage: 11 MG, 1X/DAY
     Route: 048
     Dates: start: 2013
  2. LOSARTAN/HCTZ [Concomitant]
     Active Substance: HYDROCHLOROTHIAZIDE\LOSARTAN
     Indication: BLOOD PRESSURE ABNORMAL
     Dosage: (LOSARTAN POTASSIUM: 100 MG; HYDROCHLOROTHIAZIDE: 25 MG)
  3. OMEPRAZOLE. [Concomitant]
     Active Substance: OMEPRAZOLE
     Indication: GASTROOESOPHAGEAL REFLUX DISEASE
     Dosage: 40 MG, UNK (30-60 MINUTES BEFORE BREAKFAST)
     Dates: start: 2013
  4. LEVOTHYROXINE. [Concomitant]
     Active Substance: LEVOTHYROXINE
     Indication: THYROID DISORDER
     Dosage: 0.125 MG, UNK (30 MINUTES BEFORE BREAKFAST)
     Dates: start: 2013

REACTIONS (14)
  - Nausea [Unknown]
  - Herpes zoster [Unknown]
  - Malaise [Recovered/Resolved]
  - Kidney infection [Unknown]
  - Anxiety [Unknown]
  - Depression [Unknown]
  - Blood potassium decreased [Unknown]
  - Abdominal discomfort [Unknown]
  - Migraine [Unknown]
  - Feeling abnormal [Unknown]
  - Asthenia [Unknown]
  - Blood test abnormal [Recovered/Resolved]
  - Decreased appetite [Unknown]
  - Dehydration [Unknown]

NARRATIVE: CASE EVENT DATE: 201706
